FAERS Safety Report 11575745 (Version 1)
Quarter: 2015Q3

REPORT INFORMATION
  Report Type: Spontaneous
  Country: US (occurrence: None)
  Receive Date: 20150929
  Receipt Date: 20150929
  Transmission Date: 20151125
  Serious: No
  Sender: FDA-Public Use
  Company Number: None

PATIENT
  Age: 38 Year
  Sex: Female
  Weight: 70.31 kg

DRUGS (5)
  1. LATUDA [Suspect]
     Active Substance: LURASIDONE HYDROCHLORIDE
     Indication: DEPRESSION
     Route: 048
     Dates: start: 20150803, end: 20150901
  2. TRAMADOL. [Concomitant]
     Active Substance: TRAMADOL
  3. VALSARTAN. [Concomitant]
     Active Substance: VALSARTAN
  4. LATUDA [Suspect]
     Active Substance: LURASIDONE HYDROCHLORIDE
     Indication: PANIC ATTACK
     Route: 048
     Dates: start: 20150803, end: 20150901
  5. EFFEXOR XR [Concomitant]
     Active Substance: VENLAFAXINE HYDROCHLORIDE

REACTIONS (2)
  - Paraesthesia [None]
  - Ear discomfort [None]
